FAERS Safety Report 24286363 (Version 1)
Quarter: 2024Q3

REPORT INFORMATION
  Report Type: Spontaneous
  Country: US (occurrence: US)
  Receive Date: 20240905
  Receipt Date: 20240905
  Transmission Date: 20241017
  Serious: No
  Sender: ULTRAGENYX PHARMACEUTICAL
  Company Number: US-ULTRAGENYX PHARMACEUTICAL INC.-US-UGX-24-00626

PATIENT

DRUGS (1)
  1. DOJOLVI [Suspect]
     Active Substance: TRIHEPTANOIN
     Indication: Product used for unknown indication
     Dosage: UNK

REACTIONS (1)
  - SARS-CoV-2 test positive [Unknown]
